FAERS Safety Report 14350155 (Version 3)
Quarter: 2019Q1

REPORT INFORMATION
  Report Type: Spontaneous
  Country: US (occurrence: US)
  Receive Date: 20180104
  Receipt Date: 20190328
  Transmission Date: 20190417
  Serious: No
  Sender: FDA-Public Use
  Company Number: US-PFIZER INC-2018003669

PATIENT
  Age: 77 Year
  Sex: Female

DRUGS (1)
  1. EUCRISA [Suspect]
     Active Substance: CRISABOROLE
     Dosage: UNK, 2X/DAY
     Route: 061
     Dates: start: 201712

REACTIONS (2)
  - Sneezing [Unknown]
  - Skin sensitisation [Unknown]
